FAERS Safety Report 5674912-5 (Version None)
Quarter: 2008Q2

REPORT INFORMATION
  Report Type: 
  Country: None (occurrence: None)
  Receive Date: 20080303
  Receipt Date: 20071017
  Transmission Date: 20081010
  Serious: Yes (Other)
  Sender: FDA-Public Use
  Company Number: RB-8361-2007

PATIENT
  Age: 55 Year
  Sex: Female

DRUGS (2)
  1. SUBOXONE [Suspect]
     Indication: DRUG DEPENDENCE
     Dosage: 4 MG QD 4 MG INITIAL DOSE SUBLINGUAL
     Route: 060
     Dates: start: 20071015, end: 20071015
  2. SUBUTEX [Suspect]
     Indication: DRUG DEPENDENCE
     Dosage: 4 MG BID SUBLINGUAL
     Route: 060
     Dates: start: 20071016

REACTIONS (3)
  - HALLUCINATION [None]
  - NAUSEA [None]
  - VOMITING [None]
